FAERS Safety Report 4749718-1 (Version None)
Quarter: 2005Q3

REPORT INFORMATION
  Report Type: 
  Country: None (occurrence: None)
  Receive Date: 20050822
  Receipt Date: 20050516
  Transmission Date: 20060218
  Serious: Yes (Hospitalization, Disabling)
  Sender: FDA-Public Use
  Company Number: US-MERCK-0505USA01961

PATIENT
  Age: 52 Year
  Sex: Male
  Weight: 92 kg

DRUGS (6)
  1. VIOXX [Suspect]
     Indication: RHEUMATOID ARTHRITIS
     Route: 048
     Dates: start: 20010201, end: 20040930
  2. METHOTREXATE [Concomitant]
     Route: 065
     Dates: start: 20000101
  3. FOLIC ACID [Concomitant]
     Route: 065
  4. ARAVA [Concomitant]
     Route: 065
  5. AVAPRO [Concomitant]
     Indication: HYPERTENSION
     Route: 065
     Dates: start: 20000101, end: 20031201
  6. ZOCOR [Concomitant]
     Route: 048

REACTIONS (7)
  - CORONARY ARTERY ATHEROSCLEROSIS [None]
  - CORONARY ARTERY DISEASE [None]
  - DIVERTICULUM [None]
  - HAEMORRHOIDS [None]
  - HERNIA [None]
  - HYPERLIPIDAEMIA [None]
  - MYOCARDIAL INFARCTION [None]
